FAERS Safety Report 9827419 (Version 1)
Quarter: 2013Q4

REPORT INFORMATION
  Report Type: Spontaneous
  Country: US (occurrence: None)
  Receive Date: 20131115
  Receipt Date: 20131115
  Transmission Date: 20140711
  Serious: Yes (Other)
  Sender: FDA-Public Use
  Company Number: 2013P1002761

PATIENT
  Sex: 0

DRUGS (1)
  1. DURAMORPH [Suspect]

REACTIONS (2)
  - Hypothermia [None]
  - Feeling hot [None]
